FAERS Safety Report 20703691 (Version 1)
Quarter: 2022Q2

REPORT INFORMATION
  Report Type: Report from Study
  Country: US (occurrence: US)
  Receive Date: 20220413
  Receipt Date: 20220413
  Transmission Date: 20220721
  Serious: Yes (Other)
  Sender: FDA-Public Use
  Company Number: US-BRISTOL-MYERS SQUIBB COMPANY-2022-016790

PATIENT
  Age: 87 Year
  Sex: Female
  Weight: 63.049 kg

DRUGS (3)
  1. REVLIMID [Suspect]
     Active Substance: LENALIDOMIDE
     Indication: Plasma cell myeloma
     Dosage: 28/BTL ?FREQUENCY: 14 OF 21 DAYS AND EVERY OTHER DAY
     Route: 048
  2. REVLIMID [Suspect]
     Active Substance: LENALIDOMIDE
     Indication: Colon cancer
  3. REVLIMID [Suspect]
     Active Substance: LENALIDOMIDE
     Indication: Hypokalaemia

REACTIONS (2)
  - Thrombosis [Recovered/Resolved]
  - Off label use [Unknown]
